FAERS Safety Report 5589034-1 (Version None)
Quarter: 2008Q1

REPORT INFORMATION
  Report Type: 
  Country: None (occurrence: None)
  Receive Date: 20080111
  Receipt Date: 20071227
  Transmission Date: 20080703
  Serious: Yes (Other)
  Sender: FDA-Public Use
  Company Number: FR-GILEAD-2008-0014862

PATIENT
  Age: 9 Year
  Sex: Female

DRUGS (3)
  1. VISTIDE [Suspect]
     Indication: LARYNGEAL PAPILLOMA
     Route: 042
  2. PROBENECID [Concomitant]
  3. INTERFERON ALFA-2A [Concomitant]

REACTIONS (3)
  - INTENTIONAL DRUG MISUSE [None]
  - POLYDIPSIA [None]
  - RENAL FAILURE ACUTE [None]
